FAERS Safety Report 5506965-9 (Version None)
Quarter: 2007Q4

REPORT INFORMATION
  Report Type: 
  Country: None (occurrence: None)
  Receive Date: 20071102
  Receipt Date: 20071026
  Transmission Date: 20080405
  Serious: Yes (Hospitalization)
  Sender: FDA-Public Use
  Company Number: SPV1-2007-04733

PATIENT
  Age: 56 Year
  Sex: Female

DRUGS (11)
  1. FOSRENOL [Suspect]
     Indication: RENAL FAILURE CHRONIC
     Dosage: 1000 MG, 3X/DAY:TID, ORAL
     Route: 048
     Dates: end: 20071026
  2. ZEMPLAR [Concomitant]
  3. EPOGEN [Concomitant]
  4. VENOFER [Concomitant]
  5. OPITVAR (AZELASATINE HYDROCHLORIDE) [Concomitant]
  6. ADVAIR DISKUS 100/50 [Concomitant]
  7. NEPHROVITE (ASCORHBIC ACID, BIOTIN, CALCIUM PANTOTHENATE, CYANOCOBALAM [Concomitant]
  8. PEPCID /00706001/ (FAMOTIDINE) [Concomitant]
  9. PLAVIX [Concomitant]
  10. ALTACE [Concomitant]
  11. COREG [Concomitant]

REACTIONS (3)
  - BLOOD CALCIUM INCREASED [None]
  - BLOOD PHOSPHORUS INCREASED [None]
  - COLECTOMY [None]
